FAERS Safety Report 9110061 (Version 1)
Quarter: 2013Q1

REPORT INFORMATION
  Report Type: Spontaneous
  Country: JP (occurrence: JP)
  Receive Date: 20130222
  Receipt Date: 20130222
  Transmission Date: 20140127
  Serious: Yes (Death)
  Sender: FDA-Public Use
  Company Number: JP-ROCHE-1193121

PATIENT
  Age: 47 Year
  Sex: Male

DRUGS (12)
  1. TAMIFLU [Suspect]
     Indication: INFLUENZA
     Route: 048
     Dates: start: 20130204, end: 20130206
  2. ABILIFY [Suspect]
     Indication: PRODUCT USED FOR UNKNOWN INDICATION
     Dosage: DOSAGE IS UNCERTAIN.
     Route: 048
     Dates: start: 20130206
  3. AKINETON [Concomitant]
     Dosage: DOSAGE IS UNCERTAIN.
     Route: 048
  4. HIBERNA [Concomitant]
     Dosage: DOSAGE IS UNCERTAIN.
     Route: 048
  5. LORAZEPAM [Concomitant]
     Dosage: DOSAGE IS UNCERTAIN.
     Route: 048
  6. MAGLAX [Concomitant]
     Dosage: DOSAGE IS UNCERTAIN.
     Route: 048
  7. ZYPREXA [Concomitant]
     Dosage: DOSAGE IS UNCERTAIN.
     Route: 048
  8. VEGETAMIN A [Concomitant]
     Dosage: DOSAGE IS UNCERTAIN.
     Route: 048
  9. EURODIN [Concomitant]
     Dosage: DOSAGE IS UNCERTAIN.
     Route: 048
  10. SENNOSIDE [Concomitant]
     Dosage: DOSAGE IS UNCERTAIN.
     Route: 048
  11. LIMAS [Concomitant]
     Dosage: DOSAGE IS UNCERTAIN.
     Route: 048
  12. CASANTHRANOL + DOCUSATE SODIUM [Concomitant]
     Dosage: DOSAGE IS UNCERTAIN
     Route: 048

REACTIONS (1)
  - Cardiac failure [Fatal]
